FAERS Safety Report 13836202 (Version 2)
Quarter: 2017Q3

REPORT INFORMATION
  Report Type: Report from Study
  Country: US (occurrence: AR)
  Receive Date: 20170804
  Receipt Date: 20170823
  Transmission Date: 20171127
  Serious: Yes (Hospitalization, Other)
  Sender: FDA-Public Use
  Company Number: US-SUNOVION-2017SUN003399

PATIENT
  Sex: Female

DRUGS (2)
  1. XOLAIR [Suspect]
     Active Substance: OMALIZUMAB
     Indication: ASTHMA
     Dosage: 150 MG, QMO
     Route: 065
     Dates: start: 2005
  2. GLYCOPYRROLATE. [Suspect]
     Active Substance: GLYCOPYRROLATE
     Indication: CHRONIC OBSTRUCTIVE PULMONARY DISEASE
     Dosage: UNKNOWN
     Route: 065

REACTIONS (10)
  - Fracture [Unknown]
  - Hip fracture [Recovered/Resolved]
  - Malaise [Unknown]
  - Syncope [Recovered/Resolved]
  - Coma [Unknown]
  - Pneumonia [Recovered/Resolved]
  - Osteoporosis [Recovered/Resolved]
  - Fall [Recovered/Resolved]
  - Confusional state [Unknown]
  - Condition aggravated [Unknown]

NARRATIVE: CASE EVENT DATE: 2010
